FAERS Safety Report 22530213 (Version 1)
Quarter: 2023Q2

REPORT INFORMATION
  Report Type: Spontaneous
  Country: US (occurrence: None)
  Receive Date: 20230606
  Receipt Date: 20230606
  Transmission Date: 20230722
  Serious: Yes (Disabling, Other)
  Sender: FDA-Public Use
  Company Number: None

PATIENT
  Age: 61 Year
  Sex: Female
  Weight: 92.25 kg

DRUGS (5)
  1. PREDNISONE [Suspect]
     Active Substance: PREDNISONE
     Indication: Asthma
     Dosage: OTHER QUANTITY : 1 TABLET(S);?OTHER FREQUENCY : DESCENDING ORDER;?
     Route: 048
  2. PREDNISONE [Suspect]
     Active Substance: PREDNISONE
     Indication: Wheezing
  3. SYMBICORT [Suspect]
     Active Substance: BUDESONIDE\FORMOTEROL FUMARATE DIHYDRATE
     Indication: Asthma
     Dosage: OTHER QUANTITY : 120 INHALATION(S);?FREQUENCY : 4 TIMES A DAY;?
     Route: 055
  4. ALVESCO [Suspect]
     Active Substance: CICLESONIDE
  5. DULERA [Suspect]
     Active Substance: FORMOTEROL FUMARATE DIHYDRATE\MOMETASONE FUROATE

REACTIONS (7)
  - Diabetes mellitus [None]
  - Tinnitus [None]
  - Deafness [None]
  - Depression [None]
  - Cushing^s syndrome [None]
  - Skin disorder [None]
  - Weight increased [None]

NARRATIVE: CASE EVENT DATE: 20230403
